FAERS Safety Report 7534433-1 (Version None)
Quarter: 2011Q2

REPORT INFORMATION
  Report Type: 
  Country: None (occurrence: None)
  Receive Date: 20110608
  Receipt Date: 20110527
  Transmission Date: 20111010
  Serious: Yes (Hospitalization)
  Sender: FDA-Public Use
  Company Number: DE-UCBSA-034102

PATIENT
  Sex: Female

DRUGS (3)
  1. NEUPRO [Suspect]
     Indication: RESTLESS LEGS SYNDROME
  2. NEUPRO [Suspect]
     Dosage: DOWN TITRATED DOSE
  3. CARBAMAZEPINE [Suspect]

REACTIONS (2)
  - HOSPITALISATION [None]
  - FALL [None]
